FAERS Safety Report 4539793-1 (Version None)
Quarter: 2004Q4

REPORT INFORMATION
  Report Type: 
  Country: None (occurrence: None)
  Receive Date: 20041222
  Receipt Date: 20041208
  Transmission Date: 20050328
  Serious: Yes (Other)
  Sender: FDA-Public Use
  Company Number: 2003191493US

PATIENT
  Age: 8 Year
  Sex: Male
  Weight: 19.5 kg

DRUGS (4)
  1. GENOTROPIN [Suspect]
     Indication: SMALL FOR DATES BABY
     Dosage: 1.4 MG (1.4 MG, HR), SUBCUTANEOUS
     Route: 058
     Dates: start: 20030908, end: 20031209
  2. SINGULAIR [Concomitant]
  3. ADVAIR (FLUTICASONE PROPIONATE, SALMETEROL XINAFOATE) [Concomitant]
  4. ADVIL [Concomitant]

REACTIONS (3)
  - DEVICE FAILURE [None]
  - HEADACHE [None]
  - MEDICATION ERROR [None]
